FAERS Safety Report 21472988 (Version 3)
Quarter: 2023Q1

REPORT INFORMATION
  Report Type: Spontaneous
  Country: US (occurrence: US)
  Receive Date: 20221018
  Receipt Date: 20230306
  Transmission Date: 20230417
  Serious: Yes (Hospitalization, Other)
  Sender: FDA-Public Use
  Company Number: US-UCBSA-2022052611

PATIENT
  Age: 33 Year
  Sex: Female

DRUGS (4)
  1. FINTEPLA [Suspect]
     Active Substance: FENFLURAMINE
     Indication: Severe myoclonic epilepsy of infancy
     Dosage: 2 MILLILITER, 2X/DAY (BID)
     Dates: start: 2022
  2. FINTEPLA [Suspect]
     Active Substance: FENFLURAMINE
     Dosage: 4 MILLILITER, 2X/DAY (BID)
     Dates: start: 2022
  3. FINTEPLA [Suspect]
     Active Substance: FENFLURAMINE
     Dosage: 2 MILLILITER, 2X/DAY (BID)
  4. FINTEPLA [Suspect]
     Active Substance: FENFLURAMINE
     Dosage: 2 MILLILITER, 2X/DAY (BID)
     Dates: end: 20230114

REACTIONS (6)
  - Gastrostomy [Unknown]
  - Gastroenterostomy [Not Recovered/Not Resolved]
  - Seizure [Not Recovered/Not Resolved]
  - Wound sepsis [Unknown]
  - Serotonin syndrome [Recovered/Resolved]
  - Drain placement [Not Recovered/Not Resolved]

NARRATIVE: CASE EVENT DATE: 20220816
